FAERS Safety Report 4906866-0 (Version None)
Quarter: 2006Q1

REPORT INFORMATION
  Report Type: 
  Country: None (occurrence: None)
  Receive Date: 20060209
  Receipt Date: 20050922
  Transmission Date: 20060701
  Serious: Yes (Congenital Anomaly)
  Sender: FDA-Public Use
  Company Number: JP-NOVOPROD-247158

PATIENT

DRUGS (1)
  1. NOVORAPID CHU [Suspect]
     Indication: INSULIN-REQUIRING TYPE II DIABETES MELLITUS
     Route: 015

REACTIONS (2)
  - DRUG EXPOSURE DURING PREGNANCY [None]
  - POLYDACTYLY [None]
